FAERS Safety Report 17530302 (Version 1)
Quarter: 2020Q1

REPORT INFORMATION
  Report Type: Report from Study
  Country: CO (occurrence: CO)
  Receive Date: 20200312
  Receipt Date: 20200312
  Transmission Date: 20200409
  Serious: Yes (Life-Threatening)
  Sender: FDA-Public Use
  Company Number: CO-ROCHE-2510174

PATIENT
  Sex: Female
  Weight: 74 kg

DRUGS (1)
  1. CAPECITABINE. [Suspect]
     Active Substance: CAPECITABINE
     Indication: PRODUCT USED FOR UNKNOWN INDICATION
     Route: 048

REACTIONS (7)
  - Apparent death [Unknown]
  - Immunodeficiency [Unknown]
  - Dysbiosis [Unknown]
  - Burn oral cavity [Unknown]
  - Throat irritation [Unknown]
  - Gastritis [Unknown]
  - Weight decreased [Unknown]
